FAERS Safety Report 17391730 (Version 1)
Quarter: 2020Q1

REPORT INFORMATION
  Report Type: Spontaneous
  Country: CA (occurrence: CA)
  Receive Date: 20200207
  Receipt Date: 20200207
  Transmission Date: 20200409
  Serious: Yes (Other)
  Sender: FDA-Public Use
  Company Number: CA-TEVA-2020-CA-1180738

PATIENT
  Age: 14 Year
  Sex: Female
  Weight: 35 kg

DRUGS (1)
  1. ZOLEDRONIC ACID [Suspect]
     Active Substance: ZOLEDRONIC ACID
     Indication: OSTEOGENESIS IMPERFECTA
     Route: 042

REACTIONS (5)
  - Product use issue [Unknown]
  - Off label use [Unknown]
  - Osteonecrosis of jaw [Unknown]
  - Fistula [Unknown]
  - Product use in unapproved indication [Unknown]
